FAERS Safety Report 11564693 (Version 1)
Quarter: 2015Q3

REPORT INFORMATION
  Report Type: Spontaneous
  Country: CN (occurrence: CN)
  Receive Date: 20150928
  Receipt Date: 20150928
  Transmission Date: 20151125
  Serious: Yes (Other)
  Sender: FDA-Public Use
  Company Number: CN-009507513-1509CHN013266

PATIENT

DRUGS (4)
  1. DEXAMETHASONE. [Suspect]
     Active Substance: DEXAMETHASONE
     Indication: NATURAL KILLER-CELL LYMPHOBLASTIC LYMPHOMA
     Dosage: ON DAYS 2-4, REPEATED EVERY 3 WEEKS (40 MG); UP TO 6 CYCLES
     Route: 042
  2. ETOPOSIDE. [Suspect]
     Active Substance: ETOPOSIDE
     Indication: NATURAL KILLER-CELL LYMPHOBLASTIC LYMPHOMA
     Dosage: ON DAYS 2-4; REPEATED EVERY 3 WEEKS (100 MG/M2); UP TO 6 CYCLES
     Route: 042
  3. PEGASPARGASE [Suspect]
     Active Substance: PEGASPARGASE
     Indication: NATURAL KILLER-CELL LYMPHOBLASTIC LYMPHOMA
     Dosage: UNK UNK, Q3W
     Route: 065
  4. METHOTREXATE [Suspect]
     Active Substance: METHOTREXATE
     Indication: NATURAL KILLER-CELL LYMPHOBLASTIC LYMPHOMA
     Dosage: 3 MG/M2 OVER 24 H ON DAY1; REPEATED EVERY 3 WEEKS
     Route: 042

REACTIONS (1)
  - Hepatotoxicity [Unknown]
